FAERS Safety Report 14247901 (Version 1)
Quarter: 2017Q4

REPORT INFORMATION
  Report Type: Report from Study
  Country: US (occurrence: US)
  Receive Date: 20171204
  Receipt Date: 20171204
  Transmission Date: 20180321
  Serious: Yes (Other)
  Sender: FDA-Public Use
  Company Number: US-GLAXOSMITHKLINE-US2017GSK181773

PATIENT
  Age: 61 Year
  Sex: Female
  Weight: 76.64 kg

DRUGS (7)
  1. TREPROSTINIL [Suspect]
     Active Substance: TREPROSTINIL
     Indication: PULMONARY ARTERIAL HYPERTENSION
     Route: 048
  2. REMODULIN [Suspect]
     Active Substance: TREPROSTINIL
     Dosage: 18 NG/KG/MIN
     Route: 058
     Dates: start: 20171031
  3. REMODULIN [Suspect]
     Active Substance: TREPROSTINIL
     Indication: PULMONARY ARTERIAL HYPERTENSION
     Dosage: 15 NG/KG/MIN CONTINUOUS
     Route: 058
     Dates: start: 20171013
  4. REMODULIN [Suspect]
     Active Substance: TREPROSTINIL
     Dosage: 14 NG/KG/MIN
     Route: 058
  5. EPOPROSTENOL SODIUM. [Suspect]
     Active Substance: EPOPROSTENOL SODIUM
     Indication: PRODUCT USED FOR UNKNOWN INDICATION
  6. REMODULIN [Suspect]
     Active Substance: TREPROSTINIL
     Dosage: 9 NG/KG/MIN
     Route: 058
  7. REMODULIN [Suspect]
     Active Substance: TREPROSTINIL
     Dosage: 0.016 ?G/KG, UNK
     Route: 058

REACTIONS (14)
  - Asthenia [Unknown]
  - Hyperhidrosis [Unknown]
  - Device dislocation [Unknown]
  - Infusion site pain [Unknown]
  - Pain in jaw [Recovered/Resolved]
  - Fatigue [Unknown]
  - Chills [Unknown]
  - Pain in extremity [Recovering/Resolving]
  - Drug dose omission [Unknown]
  - Nausea [Not Recovered/Not Resolved]
  - Dyspnoea [Unknown]
  - Infusion site pruritus [Unknown]
  - Headache [Not Recovered/Not Resolved]
  - Adverse drug reaction [Unknown]

NARRATIVE: CASE EVENT DATE: 2017
